FAERS Safety Report 13309679 (Version 1)
Quarter: 2017Q1

REPORT INFORMATION
  Report Type: Spontaneous
  Country: PT (occurrence: PT)
  Receive Date: 20170309
  Receipt Date: 20170309
  Transmission Date: 20170428
  Serious: Yes (Other)
  Sender: FDA-Public Use
  Company Number: PT-AUROBINDO-AUR-APL-2017-30476

PATIENT
  Age: 42 Year
  Sex: Male

DRUGS (8)
  1. LEVODOPA-CARBIDOPA [Concomitant]
     Active Substance: CARBIDOPA\LEVODOPA
     Indication: PRODUCT USED FOR UNKNOWN INDICATION
     Dosage: UNK
     Route: 065
  2. LEVODOPA-CARBIDOPA [Concomitant]
     Active Substance: CARBIDOPA\LEVODOPA
     Dosage: MEDICA??O CONCOMITANTE SEM DADOS ADICIONAIS
  3. TIZANIDINA [Concomitant]
     Indication: PRODUCT USED FOR UNKNOWN INDICATION
     Dosage: TERAP?UTICA CONCOMITANTE SEM OURA INFORMA??O
     Route: 065
  4. ROPINIROL [Concomitant]
     Active Substance: ROPINIROLE
     Dosage: TERAP?UTICA CONCOMITANTE SEM OUTRA INFORMA??O
  5. TIZANIDINA [Concomitant]
     Dosage: TERAP?UTICA CONCOMITANTE SEM OURA INFORMA??O
  6. ROPINIROL [Concomitant]
     Active Substance: ROPINIROLE
     Indication: PRODUCT USED FOR UNKNOWN INDICATION
     Dosage: UNK
     Route: 065
  7. ESCITALOPRAM [Suspect]
     Active Substance: ESCITALOPRAM OXALATE
     Indication: DEPRESSION
     Dosage: 5 MG, ONCE A DAY
     Route: 048
     Dates: start: 20170105, end: 20170108
  8. BUPROPIOM [Suspect]
     Active Substance: BUPROPION
     Indication: DEPRESSION
     Dosage: 150 MG, ONCE A DAY
     Route: 048

REACTIONS (2)
  - Loss of consciousness [Recovered/Resolved]
  - Vomiting [Recovered/Resolved]

NARRATIVE: CASE EVENT DATE: 20170108
